FAERS Safety Report 8204924-9 (Version None)
Quarter: 2012Q1

REPORT INFORMATION
  Report Type: 
  Country: None (occurrence: None)
  Receive Date: 20120313
  Receipt Date: 20120228
  Transmission Date: 20120608
  Serious: Yes (Hospitalization)
  Sender: FDA-Public Use
  Company Number: AU-GILEAD-2012-0051939

PATIENT
  Sex: Female

DRUGS (2)
  1. AMBRISENTAN [Suspect]
     Indication: PULMONARY ARTERIAL HYPERTENSION
     Dosage: 10 MG, QD
     Route: 048
     Dates: start: 20091201
  2. AMBRISENTAN [Suspect]
     Dosage: 5 MG, QD
     Route: 048
     Dates: start: 20090701, end: 20091201

REACTIONS (1)
  - HYPOKALAEMIA [None]
